FAERS Safety Report 22135487 (Version 3)
Quarter: 2023Q2

REPORT INFORMATION
  Report Type: Spontaneous
  Country: GB (occurrence: None)
  Receive Date: 20230324
  Receipt Date: 20230530
  Transmission Date: 20230722
  Serious: Yes (Other)
  Sender: FDA-Public Use
  Company Number: GB-ROCHE-3313043

PATIENT
  Age: 80 Year
  Sex: Female
  Weight: 62 kg

DRUGS (3)
  1. VABYSMO [Suspect]
     Active Substance: FARICIMAB-SVOA
     Indication: Neovascular age-related macular degeneration
     Route: 047
     Dates: start: 20221116, end: 20230209
  2. VABYSMO [Suspect]
     Active Substance: FARICIMAB-SVOA
     Route: 065
     Dates: start: 20221209, end: 20230307
  3. ATENOLOL [Concomitant]
     Active Substance: ATENOLOL
     Indication: Hypotension
     Route: 048
     Dates: start: 20180922

REACTIONS (3)
  - Iridocyclitis [Recovered/Resolved]
  - Corneal disorder [Unknown]
  - Vitreous haze [Unknown]

NARRATIVE: CASE EVENT DATE: 20230308
